FAERS Safety Report 7191154-5 (Version None)
Quarter: 2010Q4

REPORT INFORMATION
  Report Type: 
  Country: None (occurrence: None)
  Receive Date: 20101223
  Receipt Date: 20101220
  Transmission Date: 20110411
  Serious: Yes (Other)
  Sender: FDA-Public Use
  Company Number: CA-PFIZER INC-2010175836

PATIENT
  Age: 60 Year
  Sex: Female

DRUGS (9)
  1. ZELDOX [Suspect]
     Dosage: UNK
     Dates: start: 20101215, end: 20101216
  2. CYMBALTA [Concomitant]
     Dosage: 120 MG, UNK
  3. GLYBURIDE [Concomitant]
     Dosage: 7.5 MG, 2X/DAY
  4. FAMOTIDINE [Concomitant]
     Dosage: 2X/DAY
  5. RAMIPRIL [Concomitant]
     Dosage: 10 MG, UNK
  6. FLURAZEPAM [Concomitant]
     Dosage: 30 MG, AT BEDTIME
  7. ACETAMINOPHEN [Concomitant]
     Dosage: 500 MG, 2 OR 3 A DAY
  8. MAGNESIUM [Concomitant]
     Dosage: UNK
  9. VITAMIN B6 [Concomitant]
     Dosage: UNK

REACTIONS (7)
  - BLOOD GLUCOSE INCREASED [None]
  - BLOOD PRESSURE INCREASED [None]
  - CONFUSIONAL STATE [None]
  - DISTURBANCE IN ATTENTION [None]
  - FEELING HOT [None]
  - PALPITATIONS [None]
  - VOMITING [None]
